FAERS Safety Report 10062298 (Version 1)
Quarter: 2014Q2

REPORT INFORMATION
  Report Type: Spontaneous
  Country: US (occurrence: US)
  Receive Date: 20140407
  Receipt Date: 20140407
  Transmission Date: 20141212
  Serious: No
  Sender: FDA-Public Use
  Company Number: US-GLAXOSMITHKLINE-A1055998A

PATIENT
  Age: 52 Year
  Sex: Female

DRUGS (8)
  1. BENLYSTA [Suspect]
     Indication: SYSTEMIC LUPUS ERYTHEMATOSUS
     Route: 042
     Dates: start: 201311
  2. PLAQUENIL [Concomitant]
  3. AMITRIPTYLINE [Concomitant]
  4. TRAZODONE [Concomitant]
  5. SYNTHROID [Concomitant]
  6. VIIBRYD [Concomitant]
  7. MYFORTIC [Concomitant]
  8. CELLCEPT [Concomitant]

REACTIONS (4)
  - Pain [Recovering/Resolving]
  - Headache [Unknown]
  - Insomnia [Unknown]
  - Fatigue [Unknown]
